FAERS Safety Report 5912192-3 (Version None)
Quarter: 2008Q4

REPORT INFORMATION
  Report Type: 
  Country: None (occurrence: None)
  Receive Date: 20081008
  Receipt Date: 20080930
  Transmission Date: 20090506
  Serious: Yes (Disabling)
  Sender: FDA-Public Use
  Company Number: GB-TEVA-178268ISR

PATIENT
  Age: 85 Year
  Sex: Female
  Weight: 65 kg

DRUGS (1)
  1. MIRTAZAPINE [Suspect]
     Route: 048

REACTIONS (11)
  - APATHY [None]
  - DYSGEUSIA [None]
  - HAIR DISORDER [None]
  - IRRITABILITY [None]
  - JOINT SWELLING [None]
  - MYALGIA [None]
  - NAIL DISORDER [None]
  - PAIN OF SKIN [None]
  - RED BLOOD CELL SEDIMENTATION RATE INCREASED [None]
  - SKIN DISORDER [None]
  - SWELLING FACE [None]
